FAERS Safety Report 9380472 (Version 1)
Quarter: 2013Q2

REPORT INFORMATION
  Report Type: Spontaneous
  Country: GB (occurrence: None)
  Receive Date: 20130628
  Receipt Date: 20130628
  Transmission Date: 20140414
  Serious: Yes (Other)
  Sender: FDA-Public Use
  Company Number: USA/GER/13/0030186

PATIENT
  Age: 73 Year
  Sex: Male

DRUGS (1)
  1. LEVETIRACETAM (LEVETIRACETAM) [Suspect]
     Indication: PARTIAL SEIZURES

REACTIONS (6)
  - Fatigue [None]
  - Stupor [None]
  - Somnolence [None]
  - Loss of consciousness [None]
  - Foot fracture [None]
  - Anticonvulsant drug level increased [None]
